FAERS Safety Report 9254613 (Version 1)
Quarter: 2013Q2

REPORT INFORMATION
  Report Type: Report from Study
  Country: CA (occurrence: CA)
  Receive Date: 20130425
  Receipt Date: 20130425
  Transmission Date: 20140414
  Serious: Yes (Other)
  Sender: FDA-Public Use
  Company Number: CA-JNJFOC-20130410739

PATIENT
  Sex: Female
  Weight: 76.5 kg

DRUGS (2)
  1. REMICADE [Suspect]
     Indication: COLITIS ULCERATIVE
     Dosage: 300 MG AND 400 MG ALTERNATIVELY EVERY 4 WEEKS
     Route: 042
     Dates: start: 20110215
  2. REMICADE [Suspect]
     Indication: COLITIS ULCERATIVE
     Dosage: 300 MG AND 400 MG ALTERNATIVELY EVERY 4 WEEKS
     Route: 042
     Dates: start: 20130416

REACTIONS (1)
  - Arthropathy [Unknown]
